FAERS Safety Report 7282490-2 (Version None)
Quarter: 2011Q1

REPORT INFORMATION
  Report Type: 
  Country: None (occurrence: None)
  Receive Date: 20110127
  Receipt Date: 20110117
  Transmission Date: 20110831
  Serious: No
  Sender: FDA-Public Use
  Company Number: 2011-00020

PATIENT
  Age: 58 Year
  Sex: Female
  Weight: 72.5755 kg

DRUGS (3)
  1. LIPITOR [Concomitant]
  2. ZICAM COLD REMEDY NASAL GEL [Suspect]
     Dosage: Q4 HOURS X 1 WEEK
     Dates: start: 20090401, end: 20090401
  3. CALCIUM [Concomitant]

REACTIONS (1)
  - ANOSMIA [None]
